FAERS Safety Report 20068467 (Version 1)
Quarter: 2021Q4

REPORT INFORMATION
  Report Type: Spontaneous
  Country: US (occurrence: US)
  Receive Date: 20211115
  Receipt Date: 20211115
  Transmission Date: 20220303
  Serious: Yes (Hospitalization, Other)
  Sender: FDA-Public Use
  Company Number: US-TAKEDA-2021TUS069977

PATIENT
  Sex: Female

DRUGS (5)
  1. ENTYVIO [Suspect]
     Active Substance: VEDOLIZUMAB
     Indication: Colitis ulcerative
     Dosage: UNK
     Route: 042
     Dates: start: 2014
  2. HUMIRA [Concomitant]
     Active Substance: ADALIMUMAB
     Indication: Colitis ulcerative
     Dosage: UNK
     Route: 065
  3. HUMIRA [Concomitant]
     Active Substance: ADALIMUMAB
     Indication: Crohn^s disease
  4. PREDNISONE [Concomitant]
     Active Substance: PREDNISONE
     Dosage: UNK
     Dates: start: 2020
  5. USTEKINUMAB [Concomitant]
     Active Substance: USTEKINUMAB
     Dosage: UNK

REACTIONS (8)
  - Crohn^s disease [Unknown]
  - Pouchitis [Unknown]
  - Conjunctivitis [Unknown]
  - Fibromyalgia [Unknown]
  - Dehydration [Unknown]
  - Haematuria [Unknown]
  - Device occlusion [Unknown]
  - Abscess [Unknown]
